FAERS Safety Report 8334635-0 (Version None)
Quarter: 2012Q2

REPORT INFORMATION
  Report Type: 
  Country: None (occurrence: None)
  Receive Date: 20120503
  Receipt Date: 20120423
  Transmission Date: 20120825
  Serious: Yes (Disabling)
  Sender: FDA-Public Use
  Company Number: JP-MERCK-1204USA01304

PATIENT
  Age: 60 Year
  Sex: Female

DRUGS (2)
  1. JANUVIA [Suspect]
     Route: 048
  2. JANUVIA [Suspect]
     Route: 048
     Dates: start: 20100301

REACTIONS (1)
  - ARTHRALGIA [None]
